FAERS Safety Report 8536444 (Version 3)
Quarter: 2012Q4

REPORT INFORMATION
  Report Type: 
  Country: JP (occurrence: JP)
  Receive Date: 20120430
  Receipt Date: 20121023
  Transmission Date: 20130627
  Serious: Yes (Hospitalization)
  Sender: FDA-Public Use
  Company Number: JP-GLAXOSMITHKLINE-B0797004A

PATIENT
  Age: 96 Year
  Sex: Male
  Weight: 45 kg

DRUGS (4)
  1. VALTREX [Suspect]
     Indication: HERPES ZOSTER
     Dosage: 1000MG Three times per day
     Route: 048
     Dates: start: 20120410, end: 20120413
  2. METHYCOBAL [Concomitant]
     Route: 065
     Dates: end: 20120413
  3. FLIVAS [Concomitant]
     Route: 048
     Dates: end: 20120413
  4. HYPEN [Concomitant]
     Route: 048
     Dates: end: 20120413

REACTIONS (16)
  - Encephalopathy [Recovered/Resolved]
  - Renal failure acute [Recovered/Resolved]
  - Dyslalia [Recovering/Resolving]
  - Muscular weakness [Recovering/Resolving]
  - Decreased appetite [Recovering/Resolving]
  - Renal disorder [Recovering/Resolving]
  - Blood pressure decreased [Recovering/Resolving]
  - Yawning [Recovering/Resolving]
  - Unresponsive to stimuli [Recovering/Resolving]
  - Altered state of consciousness [Recovering/Resolving]
  - Dehydration [Recovering/Resolving]
  - Prerenal failure [Recovering/Resolving]
  - Renal failure [Recovering/Resolving]
  - Renal impairment [Recovering/Resolving]
  - Somnolence [Recovering/Resolving]
  - Drug level increased [Recovering/Resolving]
